FAERS Safety Report 24121388 (Version 6)
Quarter: 2024Q4

REPORT INFORMATION
  Report Type: Spontaneous
  Country: DE (occurrence: DE)
  Receive Date: 20240722
  Receipt Date: 20241128
  Transmission Date: 20250115
  Serious: Yes (Life-Threatening, Other)
  Sender: PFIZER
  Company Number: DE-AMGEN-DEUSP2024136769

PATIENT
  Age: 17 Year
  Sex: Female
  Weight: 65 kg

DRUGS (62)
  1. BESPONSA [Suspect]
     Active Substance: INOTUZUMAB OZOGAMICIN
     Indication: B precursor type acute leukaemia
     Dosage: 1.5 MILLIGRAM, QWK
     Route: 065
     Dates: start: 20240422, end: 20240422
  2. BESPONSA [Suspect]
     Active Substance: INOTUZUMAB OZOGAMICIN
     Dosage: 0.9 MILLIGRAM, QWK
     Route: 065
     Dates: start: 20240429, end: 20240506
  3. BLINATUMOMAB [Suspect]
     Active Substance: BLINATUMOMAB
     Indication: B precursor type acute leukaemia
     Dosage: 15 UG/M2
     Route: 042
     Dates: start: 20240618, end: 20240619
  4. BLINATUMOMAB [Suspect]
     Active Substance: BLINATUMOMAB
     Dosage: 5 MICROGRAM/SQ. METER, QD, DOSE REDUCED
     Route: 042
     Dates: start: 20240624
  5. BLINATUMOMAB [Suspect]
     Active Substance: BLINATUMOMAB
     Dosage: 27 MILLIGRAM, QD (27 MG IN 180 ML)
     Route: 042
     Dates: start: 20240624, end: 20240626
  6. BLINATUMOMAB [Suspect]
     Active Substance: BLINATUMOMAB
     Dosage: 15 MICROGRAM, QD CONTINOUS DOSE INCREASED
     Route: 042
     Dates: start: 20240701, end: 20240704
  7. BLINATUMOMAB [Suspect]
     Active Substance: BLINATUMOMAB
     Dosage: 15 MICROGRAM/SQ. METER, QD, CONTINUOUS INFUSION, DOSE INCREASED
     Route: 042
     Dates: start: 20240701, end: 20240704
  8. DIMENHYDRINATE [Concomitant]
     Active Substance: DIMENHYDRINATE
     Indication: Precursor B-lymphoblastic lymphoma
     Dosage: UNK
     Route: 042
     Dates: start: 20240426, end: 20240426
  9. DEXAMETHASONE [Concomitant]
     Active Substance: DEXAMETHASONE
     Indication: Seizure
     Dosage: UNK
     Dates: start: 20240417, end: 20240420
  10. DEXAMETHASONE [Concomitant]
     Active Substance: DEXAMETHASONE
     Indication: Precursor B-lymphoblastic lymphoma
     Dosage: UNK
     Dates: start: 20240429
  11. DEXAMETHASONE [Concomitant]
     Active Substance: DEXAMETHASONE
     Indication: Loss of consciousness
     Dosage: UNK
     Dates: start: 20240701, end: 20240704
  12. DEXAMETHASONE [Concomitant]
     Active Substance: DEXAMETHASONE
     Dosage: UNK
     Dates: start: 20240419, end: 20240419
  13. DEXAMETHASONE [Concomitant]
     Active Substance: DEXAMETHASONE
     Dosage: UNK
     Dates: start: 20240418, end: 20240418
  14. DEXAMETHASONE [Concomitant]
     Active Substance: DEXAMETHASONE
     Dosage: UNK
     Dates: start: 20240417, end: 20240417
  15. DEXAMETHASONE [Concomitant]
     Active Substance: DEXAMETHASONE
     Dosage: UNK
     Dates: start: 20240420, end: 20240420
  16. DEXAMETHASONE [Concomitant]
     Active Substance: DEXAMETHASONE
     Dosage: UNK
     Dates: start: 20240701, end: 20240704
  17. POTASSIUM [Concomitant]
     Active Substance: POTASSIUM
     Indication: Precursor B-lymphoblastic lymphoma
     Dosage: UNK
     Route: 048
     Dates: start: 20240428, end: 20240503
  18. MIDAZOLAM HYDROCHLORIDE [Concomitant]
     Active Substance: MIDAZOLAM HYDROCHLORIDE
     Indication: Precursor B-lymphoblastic lymphoma
     Dosage: UNK
     Route: 042
     Dates: start: 20240417, end: 20240417
  19. ONDANSETRON [Concomitant]
     Active Substance: ONDANSETRON
     Indication: Precursor B-lymphoblastic lymphoma
     Dosage: UNK
     Route: 042
     Dates: start: 20240429, end: 20240429
  20. ALLOPURINOL [Concomitant]
     Active Substance: ALLOPURINOL
     Indication: Precursor B-lymphoblastic lymphoma
     Dosage: UNK
     Dates: start: 20240415, end: 20240415
  21. ALLOPURINOL [Concomitant]
     Active Substance: ALLOPURINOL
     Dosage: UNK
     Dates: start: 20240416, end: 20240426
  22. AMBISOME [Concomitant]
     Active Substance: AMPHOTERICIN B
     Indication: Precursor B-lymphoblastic lymphoma
     Dosage: UNK
     Dates: start: 20240510, end: 20240510
  23. AMBISOME [Concomitant]
     Active Substance: AMPHOTERICIN B
     Dosage: UNK
     Route: 042
     Dates: start: 20240419, end: 20240507
  24. AMBISOME [Concomitant]
     Active Substance: AMPHOTERICIN B
     Dosage: UNK
     Route: 042
     Dates: start: 20240514, end: 20240514
  25. AMBISOME [Concomitant]
     Active Substance: AMPHOTERICIN B
     Dosage: UNK
     Route: 042
     Dates: start: 20240514, end: 20240519
  26. AMBISOME [Concomitant]
     Active Substance: AMPHOTERICIN B
     Dosage: UNK
     Route: 042
     Dates: start: 20240515, end: 20240516
  27. AMBISOME [Concomitant]
     Active Substance: AMPHOTERICIN B
     Dosage: UNK
     Route: 042
     Dates: start: 20240517, end: 20240517
  28. VANCOMYCIN [Concomitant]
     Active Substance: VANCOMYCIN
     Indication: Precursor B-lymphoblastic lymphoma
     Dosage: UNK
     Route: 042
     Dates: start: 20240426, end: 20240426
  29. VANCOMYCIN [Concomitant]
     Active Substance: VANCOMYCIN
     Dosage: UNK
     Route: 042
     Dates: start: 20240427, end: 20240427
  30. VANCOMYCIN [Concomitant]
     Active Substance: VANCOMYCIN
     Dosage: UNK
     Route: 042
     Dates: start: 20240428, end: 20240501
  31. VANCOMYCIN [Concomitant]
     Active Substance: VANCOMYCIN
     Dosage: UNK
     Route: 042
     Dates: start: 20240502, end: 20240502
  32. CASPOFUNGIN [Concomitant]
     Active Substance: CASPOFUNGIN
     Indication: Precursor B-lymphoblastic lymphoma
     Dosage: UNK
     Route: 042
     Dates: start: 20240501, end: 20240501
  33. CASPOFUNGIN [Concomitant]
     Active Substance: CASPOFUNGIN
     Dosage: UNK
     Route: 042
     Dates: start: 20240502, end: 20240506
  34. METAMIZOL [Concomitant]
     Active Substance: METAMIZOLE SODIUM
     Indication: Precursor B-lymphoblastic lymphoma
     Dosage: UNK
     Route: 042
     Dates: start: 20240415, end: 20240416
  35. METAMIZOL [Concomitant]
     Active Substance: METAMIZOLE SODIUM
     Dosage: UNK
     Route: 042
     Dates: start: 20240417, end: 20240417
  36. METAMIZOL [Concomitant]
     Active Substance: METAMIZOLE SODIUM
     Dosage: UNK
     Route: 042
     Dates: start: 20240418, end: 20240418
  37. METAMIZOL [Concomitant]
     Active Substance: METAMIZOLE SODIUM
     Dosage: UNK
     Route: 042
     Dates: start: 20240419, end: 20240419
  38. METAMIZOL [Concomitant]
     Active Substance: METAMIZOLE SODIUM
     Dosage: UNK
     Route: 042
     Dates: start: 20240422, end: 20240422
  39. BISACODYL [Concomitant]
     Active Substance: BISACODYL
     Indication: Precursor B-lymphoblastic lymphoma
     Dosage: UNK
     Route: 048
     Dates: start: 20240427, end: 20240428
  40. LACTATED RINGERS SOLUTION [Concomitant]
     Active Substance: CALCIUM CHLORIDE\POTASSIUM CHLORIDE\SODIUM CHLORIDE\SODIUM LACTATE
     Indication: Precursor B-lymphoblastic lymphoma
     Dosage: UNK
     Route: 042
     Dates: start: 20240423, end: 20240423
  41. FUROSEMIDE [Concomitant]
     Active Substance: FUROSEMIDE
     Indication: Precursor B-lymphoblastic lymphoma
     Dosage: UNK
     Route: 042
     Dates: start: 20240415, end: 20240418
  42. FUROSEMIDE [Concomitant]
     Active Substance: FUROSEMIDE
     Dosage: UNK
     Route: 042
     Dates: start: 20240420, end: 20240420
  43. FUROSEMIDE [Concomitant]
     Active Substance: FUROSEMIDE
     Dosage: UNK
     Route: 042
     Dates: start: 20240424, end: 20240424
  44. TAZOBACTAM [Concomitant]
     Active Substance: TAZOBACTAM
     Indication: Precursor B-lymphoblastic lymphoma
     Dosage: UNK
     Route: 042
     Dates: start: 20240422, end: 20240422
  45. TAZOBACTAM [Concomitant]
     Active Substance: TAZOBACTAM
     Dosage: UNK
     Route: 042
     Dates: start: 20240423, end: 20240502
  46. METHOTREXATE SODIUM [Concomitant]
     Active Substance: METHOTREXATE SODIUM
     Indication: Precursor B-lymphoblastic lymphoma
     Dosage: UNK
     Route: 037
     Dates: start: 20240618
  47. TRENANTONE [Concomitant]
     Active Substance: LEUPROLIDE ACETATE
     Indication: Precursor B-lymphoblastic lymphoma
     Dosage: UNK
     Route: 048
     Dates: start: 20240416, end: 20240416
  48. ACETAMINOPHEN [Concomitant]
     Active Substance: ACETAMINOPHEN
     Indication: Precursor B-lymphoblastic lymphoma
     Dosage: UNK
     Route: 042
     Dates: start: 20240422, end: 20240422
  49. ACETAMINOPHEN [Concomitant]
     Active Substance: ACETAMINOPHEN
     Dosage: UNK
     Route: 042
     Dates: start: 20240427, end: 20240504
  50. ACETAMINOPHEN [Concomitant]
     Active Substance: ACETAMINOPHEN
     Dosage: UNK
     Route: 042
     Dates: start: 20240428, end: 20240428
  51. ACETAMINOPHEN [Concomitant]
     Active Substance: ACETAMINOPHEN
     Dosage: UNK
     Route: 042
     Dates: start: 20240503, end: 20240503
  52. ACETAMINOPHEN [Concomitant]
     Active Substance: ACETAMINOPHEN
     Dosage: UNK
     Route: 042
     Dates: start: 20240504, end: 20240504
  53. ACETAMINOPHEN [Concomitant]
     Active Substance: ACETAMINOPHEN
     Dosage: UNK
     Route: 042
     Dates: start: 20240427, end: 20240427
  54. ACETAMINOPHEN [Concomitant]
     Active Substance: ACETAMINOPHEN
     Dosage: UNK
     Route: 042
     Dates: start: 20240429, end: 20240501
  55. ACETAMINOPHEN [Concomitant]
     Active Substance: ACETAMINOPHEN
     Dosage: UNK
     Route: 042
     Dates: start: 20240502, end: 20240502
  56. POLYETHYLENE GLYCOLS [Concomitant]
     Active Substance: POLYETHYLENE GLYCOLS
     Indication: Precursor B-lymphoblastic lymphoma
     Dosage: UNK
     Route: 048
     Dates: start: 20240426, end: 20240426
  57. LACTULOSE [Concomitant]
     Active Substance: LACTULOSE
     Indication: Precursor B-lymphoblastic lymphoma
     Dosage: UNK
     Route: 048
     Dates: start: 20240503, end: 20240505
  58. LACTULOSE [Concomitant]
     Active Substance: LACTULOSE
     Dosage: UNK
     Route: 048
     Dates: start: 20240506, end: 20240506
  59. LACTULOSE [Concomitant]
     Active Substance: LACTULOSE
     Dosage: UNK
     Route: 048
     Dates: start: 20240507, end: 20240507
  60. SULFAMETHOXAZOLE\TRIMETHOPRIM [Concomitant]
     Active Substance: SULFAMETHOXAZOLE\TRIMETHOPRIM
     Indication: Precursor B-lymphoblastic lymphoma
     Dosage: UNK
     Dates: start: 20240420, end: 20240505
  61. OMEPRAZOLE [Concomitant]
     Active Substance: OMEPRAZOLE
     Indication: Precursor B-lymphoblastic lymphoma
     Dosage: UNK
     Route: 048
     Dates: start: 20240418, end: 20240501
  62. ACYCLOVIR [Concomitant]
     Active Substance: ACYCLOVIR
     Indication: Precursor B-lymphoblastic lymphoma
     Dosage: UNK
     Dates: start: 20240506

REACTIONS (4)
  - Seizure [Recovered/Resolved]
  - Loss of consciousness [Recovered/Resolved]
  - Blood brain barrier defect [Unknown]
  - Off label use [Unknown]

NARRATIVE: CASE EVENT DATE: 20240422
